FAERS Safety Report 4494620-6 (Version None)
Quarter: 2004Q4

REPORT INFORMATION
  Report Type: 
  Country: None (occurrence: None)
  Receive Date: 20041103
  Receipt Date: 20041020
  Transmission Date: 20050328
  Serious: Yes (Hospitalization)
  Sender: FDA-Public Use
  Company Number: 200412989GDS

PATIENT

DRUGS (1)
  1. NIFEDIPINE [Suspect]

REACTIONS (2)
  - ACCIDENTAL EXPOSURE [None]
  - DRUG TOXICITY [None]
